FAERS Safety Report 15368856 (Version 1)
Quarter: 2018Q3

REPORT INFORMATION
  Report Type: Spontaneous
  Country: FR (occurrence: FR)
  Receive Date: 20180911
  Receipt Date: 20180911
  Transmission Date: 20181010
  Serious: Yes (Hospitalization)
  Sender: FDA-Public Use
  Company Number: FR-TEVA-2018-FR-953186

PATIENT
  Age: 19 Year
  Sex: Female

DRUGS (3)
  1. ALCOOL [Suspect]
     Active Substance: ALCOHOL
     Indication: ALCOHOL USE
     Dosage: NOT INFORMED
     Route: 048
  2. COCAINE [Suspect]
     Active Substance: COCAINE
     Indication: DRUG ABUSE
     Dosage: NOT INFORMED
     Route: 065
  3. ALPRAZOLAM. [Suspect]
     Active Substance: ALPRAZOLAM
     Indication: PRODUCT USED FOR UNKNOWN INDICATION
     Dosage: 1 TO 5 PC SB
     Route: 048

REACTIONS (4)
  - Victim of chemical submission [Recovering/Resolving]
  - Alcohol poisoning [Recovering/Resolving]
  - Drug abuse [Recovering/Resolving]
  - Victim of sexual abuse [Recovering/Resolving]

NARRATIVE: CASE EVENT DATE: 20171222
